FAERS Safety Report 19252613 (Version 2)
Quarter: 2021Q2

REPORT INFORMATION
  Report Type: Spontaneous
  Country: US (occurrence: US)
  Receive Date: 20210512
  Receipt Date: 20210617
  Transmission Date: 20210717
  Serious: Yes (Other)
  Sender: FDA-Public Use
  Company Number: US-SA-2021SA157362

PATIENT
  Age: 7 Year
  Sex: Male

DRUGS (5)
  1. EPINEPHRINE. [Concomitant]
     Active Substance: EPINEPHRINE
  2. VANICREAM [Concomitant]
     Active Substance: TITANIUM DIOXIDE\ZINC OXIDE
  3. TRIAMCINOLONE ACETONIDE. [Concomitant]
     Active Substance: TRIAMCINOLONE ACETONIDE
  4. DUPIXENT [Suspect]
     Active Substance: DUPILUMAB
     Indication: ECZEMA
     Dosage: UNK
     Route: 058
     Dates: start: 202101
  5. DIPHENHYDRAMINE. [Concomitant]
     Active Substance: DIPHENHYDRAMINE

REACTIONS (16)
  - Eyelid cyst [Unknown]
  - Rash erythematous [Unknown]
  - Arthralgia [Unknown]
  - Eye swelling [Unknown]
  - Eyelid disorder [Unknown]
  - Dry skin [Recovering/Resolving]
  - Erythema [Unknown]
  - Pruritus [Unknown]
  - Swelling of eyelid [Unknown]
  - Urticaria [Unknown]
  - Skin discolouration [Unknown]
  - Hypersensitivity [Recovering/Resolving]
  - Paraesthesia oral [Unknown]
  - Erythema of eyelid [Unknown]
  - Erythema [Recovering/Resolving]
  - Swelling face [Unknown]

NARRATIVE: CASE EVENT DATE: 2021
